FAERS Safety Report 16122663 (Version 1)
Quarter: 2019Q1

REPORT INFORMATION
  Report Type: Spontaneous
  Country: US (occurrence: US)
  Receive Date: 20190222
  Receipt Date: 20190222
  Transmission Date: 20190418
  Serious: Yes (Death)
  Sender: FDA-Public Use
  Company Number: None

PATIENT
  Age: 60 Year
  Sex: Female

DRUGS (1)
  1. FENTORA [Suspect]
     Active Substance: FENTANYL CITRATE
     Indication: ARTHRITIS BACTERIAL
     Dosage: ?          OTHER FREQUENCY:Q2H;?
     Route: 048
     Dates: start: 20180807

REACTIONS (1)
  - Death [None]
